FAERS Safety Report 7905130-5 (Version None)
Quarter: 2011Q4

REPORT INFORMATION
  Report Type: 
  Country: None (occurrence: None)
  Receive Date: 20111109
  Receipt Date: 20111103
  Transmission Date: 20120403
  Serious: Yes (Other)
  Sender: FDA-Public Use
  Company Number: CHPA2011US015497

PATIENT
  Age: 39 Year
  Sex: Female

DRUGS (1)
  1. TRANSDERM SCOP [Suspect]
     Indication: IMPAIRED GASTRIC EMPTYING
     Dosage: 1 DF, Q5D
     Route: 062
     Dates: start: 20101101, end: 20110901

REACTIONS (5)
  - DEHYDRATION [None]
  - VOMITING [None]
  - OFF LABEL USE [None]
  - DISEASE RECURRENCE [None]
  - INAPPROPRIATE SCHEDULE OF DRUG ADMINISTRATION [None]
